FAERS Safety Report 20430172 (Version 1)
Quarter: 2022Q1

REPORT INFORMATION
  Report Type: Report from Study
  Country: FR (occurrence: FR)
  Receive Date: 20220204
  Receipt Date: 20220204
  Transmission Date: 20220423
  Serious: Yes (Hospitalization)
  Sender: FDA-Public Use
  Company Number: FR-SERVIER-S20004036

PATIENT

DRUGS (10)
  1. ONCASPAR [Suspect]
     Active Substance: PEGASPARGASE
     Indication: Acute lymphocytic leukaemia
     Dosage: 1850 IU, ON D4, D43
     Route: 042
     Dates: start: 20190920, end: 20191125
  2. VINCRISTINE [Suspect]
     Active Substance: VINCRISTINE
     Indication: Acute lymphocytic leukaemia
     Dosage: 1,1 MG, ON D1, D8, D15, D43, D50
     Route: 042
     Dates: start: 20190917, end: 20191125
  3. ADRIAMYCIN [Suspect]
     Active Substance: DOXORUBICIN HYDROCHLORIDE
     Indication: Acute lymphocytic leukaemia
     Dosage: 18 MG, ON D1, D8, D15
     Route: 042
     Dates: start: 20190917, end: 20191001
  4. DEXAMETHASONE [Suspect]
     Active Substance: DEXAMETHASONE
     Indication: Acute lymphocytic leukaemia
     Dosage: 7.5 MG QD FROM D1 TO D7 AND FROM D15 TO D21
     Route: 048
     Dates: start: 20190917, end: 20191007
  5. METHOTREXATE [Suspect]
     Active Substance: METHOTREXATE
     Indication: Acute lymphocytic leukaemia
     Dosage: 12 MG, ON D3, D31
     Route: 037
     Dates: start: 20190920, end: 20191106
  6. CYTARABINE [Suspect]
     Active Substance: CYTARABINE
     Indication: Acute lymphocytic leukaemia
     Dosage: 30 MG, ON D3, D31
     Route: 037
     Dates: start: 20190920, end: 20191106
  7. CYTARABINE [Suspect]
     Active Substance: CYTARABINE
     Dosage: 55 MG QD FROM D31 TO D34 AND FROM D38 TO D41
     Route: 042
     Dates: start: 20191104, end: 20191117
  8. HYDROCORTISONE [Suspect]
     Active Substance: HYDROCORTISONE
     Indication: Acute lymphocytic leukaemia
     Dosage: 15 MG, ON D3, D31
     Route: 037
     Dates: start: 20190920, end: 20191106
  9. CYCLOPHOSPHAMIDE [Suspect]
     Active Substance: CYCLOPHOSPHAMIDE
     Indication: Acute lymphocytic leukaemia
     Dosage: 730 MG, ON D29
     Route: 042
     Dates: start: 20191104, end: 20191104
  10. THIOGUANINE [Suspect]
     Active Substance: THIOGUANINE
     Indication: Acute lymphocytic leukaemia
     Dosage: 45 MG QD FROM D29 TO D42
     Route: 048
     Dates: start: 20191104, end: 20191117

REACTIONS (2)
  - Febrile bone marrow aplasia [Recovered/Resolved]
  - Staphylococcal bacteraemia [Recovered/Resolved]

NARRATIVE: CASE EVENT DATE: 20191126
